FAERS Safety Report 23603560 (Version 1)
Quarter: 2024Q1

REPORT INFORMATION
  Report Type: Other
  Country: CA (occurrence: CA)
  Receive Date: 20240307
  Receipt Date: 20240307
  Transmission Date: 20240410
  Serious: Yes (Other)
  Sender: FDA-Public Use
  Company Number: CA-APOTEX-2024AP003096

PATIENT
  Sex: Female

DRUGS (1)
  1. DASATINIB [Suspect]
     Active Substance: DASATINIB
     Indication: Leukaemia
     Dosage: 70 MILLIGRAM, QD
     Route: 048
     Dates: start: 20201019

REACTIONS (1)
  - Adverse event [Unknown]
